FAERS Safety Report 23131710 (Version 1)
Quarter: 2023Q4

REPORT INFORMATION
  Report Type: Report from Study
  Country: PR (occurrence: PR)
  Receive Date: 20231031
  Receipt Date: 20231031
  Transmission Date: 20240110
  Serious: Yes (Hospitalization)
  Sender: FDA-Public Use
  Company Number: PR-ABBVIE-5470459

PATIENT
  Sex: Female
  Weight: 58.966 kg

DRUGS (11)
  1. VENCLEXTA [Suspect]
     Active Substance: VENETOCLAX
     Indication: Acute myeloid leukaemia
     Route: 048
     Dates: start: 202210
  2. LEVOFLOXACIN [Concomitant]
     Active Substance: LEVOFLOXACIN
     Indication: Product used for unknown indication
     Dosage: FORM STRENGTH: 250 MG
  3. APETIGEN [Concomitant]
     Indication: Product used for unknown indication
     Dosage: FORM STRENGTH: 250 MG
  4. VITAMIN C [Concomitant]
     Active Substance: ASCORBIC ACID
     Indication: Product used for unknown indication
     Dosage: FORM STRENGTH: 1000 MG
  5. VITAMIN D3 [Concomitant]
     Active Substance: CHOLECALCIFEROL
     Indication: Product used for unknown indication
  6. SYNTHROID [Concomitant]
     Active Substance: LEVOTHYROXINE SODIUM
     Indication: Product used for unknown indication
     Dosage: FORM STRENGTH: 88 MG
  7. SIMVASTATIN [Concomitant]
     Active Substance: SIMVASTATIN
     Indication: Product used for unknown indication
     Dosage: FORM STRENGTH: 20 MG
  8. VITAMIN E [Concomitant]
     Active Substance: .ALPHA.-TOCOPHEROL
     Indication: Product used for unknown indication
     Dosage: FORM STRENGTH: 1000 MG
  9. NAMENDA [Concomitant]
     Active Substance: MEMANTINE HYDROCHLORIDE
     Indication: Product used for unknown indication
     Dosage: FORM STRENGTH: 5 MG
  10. PROTONIX [Concomitant]
     Active Substance: PANTOPRAZOLE SODIUM
     Indication: Product used for unknown indication
     Dosage: FORM STRENGTH: 40 MG
  11. PRILOSEC [Concomitant]
     Active Substance: OMEPRAZOLE MAGNESIUM
     Indication: Product used for unknown indication
     Dosage: FORM STRENGTH: 20 MG

REACTIONS (2)
  - Haemoglobin decreased [Not Recovered/Not Resolved]
  - Platelet count decreased [Not Recovered/Not Resolved]

NARRATIVE: CASE EVENT DATE: 20231025
